FAERS Safety Report 25282973 (Version 1)
Quarter: 2025Q2

REPORT INFORMATION
  Report Type: Spontaneous
  Country: IN (occurrence: IN)
  Receive Date: 20250508
  Receipt Date: 20250508
  Transmission Date: 20250716
  Serious: Yes (Other)
  Sender: INSUD PHARMA
  Company Number: IN-INSUD PHARMA-2504IN03396

PATIENT

DRUGS (3)
  1. NUVESSA [Suspect]
     Active Substance: METRONIDAZOLE
     Indication: Hepatic amoebiasis
     Dosage: 800 MILLIGRAM, TID
     Route: 048
  2. NUVESSA [Suspect]
     Active Substance: METRONIDAZOLE
     Dosage: 750 MILLIGRAM, TID
     Route: 065
  3. CEFTRIAXONE [Concomitant]
     Active Substance: CEFTRIAXONE
     Indication: Hepatic amoebiasis
     Dosage: INJECTION OF 1 GRAM, BID

REACTIONS (7)
  - Neurotoxicity [Recovering/Resolving]
  - Dysarthria [Recovering/Resolving]
  - Gait disturbance [Recovering/Resolving]
  - Hypoaesthesia [Recovering/Resolving]
  - Paraesthesia [Recovering/Resolving]
  - Nausea [Unknown]
  - Vomiting [Unknown]
